FAERS Safety Report 17371367 (Version 3)
Quarter: 2020Q2

REPORT INFORMATION
  Report Type: Spontaneous
  Country: US (occurrence: US)
  Receive Date: 20200205
  Receipt Date: 20200514
  Transmission Date: 20200713
  Serious: No
  Sender: FDA-Public Use
  Company Number: US-VERTEX PHARMACEUTICALS-2020-001678

PATIENT
  Age: 24 Year
  Sex: Female
  Weight: 93 kg

DRUGS (11)
  1. MISOPROSTOL. [Concomitant]
     Active Substance: MISOPROSTOL
  2. PANTOPRAZOLE [Concomitant]
     Active Substance: PANTOPRAZOLE
  3. POTASSIUM CITRATE. [Concomitant]
     Active Substance: POTASSIUM CITRATE
  4. LANTUS [Concomitant]
     Active Substance: INSULIN GLARGINE
  5. HUMALOG [Concomitant]
     Active Substance: INSULIN LISPRO
  6. VITAMIN D3 [Concomitant]
     Active Substance: CHOLECALCIFEROL
  7. TRIKAFTA [Suspect]
     Active Substance: ELEXACAFTOR\IVACAFTOR\TEZACAFTOR
     Indication: CYSTIC FIBROSIS
     Dosage: 2 TABLETS (100 MG ELEXACAFTOR/ 50MG TEZACAFTOR/ 75MG IVACAFTOR) AM ;1 TABLET (150 MG IVACAFTOR) PM
     Route: 048
     Dates: start: 20200109
  8. LOSARTAN. [Concomitant]
     Active Substance: LOSARTAN
  9. ZENPEP [Concomitant]
     Active Substance: PANCRELIPASE AMYLASE\PANCRELIPASE LIPASE\PANCRELIPASE PROTEASE
  10. AZITHROMYCIN ANHYDROUS. [Concomitant]
     Active Substance: AZITHROMYCIN ANHYDROUS
  11. LORATADINE. [Concomitant]
     Active Substance: LORATADINE

REACTIONS (3)
  - Headache [Not Recovered/Not Resolved]
  - Weight increased [Unknown]
  - Productive cough [Recovered/Resolved]

NARRATIVE: CASE EVENT DATE: 2020
